FAERS Safety Report 8790784 (Version 2)
Quarter: 2012Q4

REPORT INFORMATION
  Report Type: Spontaneous
  Country: DK (occurrence: None)
  Receive Date: 20120907
  Receipt Date: 20121009
  Transmission Date: 20130627
  Serious: Yes (Hospitalization)
  Sender: FDA-Public Use
  Company Number: 2012MA010633

PATIENT
  Age: 69 Year
  Sex: Female

DRUGS (13)
  1. DIAZEPAM [Suspect]
  2. ISOSORBIDE MONONITRATE [Suspect]
  3. SALBUTAMOL [Suspect]
  4. HYOSCINE BUTYLBROMIDE [Suspect]
  5. PAROXETINE [Suspect]
  6. LANSOPRAZOLE [Suspect]
  7. ASA [Suspect]
  8. FELODIPINE [Suspect]
  9. CYCLIZINE [Suspect]
  10. FUROSEMIDE (FUROSEMIDE) [Suspect]
  11. GLICLAZIDE [Suspect]
  12. SIMVASTATIN (SIMVASTATIN) [Suspect]
  13. BUTYLSCOPOLAMINE (NO PREF. NAME) [Suspect]

REACTIONS (1)
  - Angioedema [None]
